FAERS Safety Report 4651893-4 (Version None)
Quarter: 2005Q2

REPORT INFORMATION
  Report Type: 
  Country: None (occurrence: None)
  Receive Date: 20050504
  Receipt Date: 20050420
  Transmission Date: 20051028
  Serious: Yes (Other)
  Sender: FDA-Public Use
  Company Number: PHEH2005US04559

PATIENT
  Age: 84 Year
  Sex: Female

DRUGS (3)
  1. ZOMETA [Suspect]
     Indication: BREAST CANCER METASTATIC
     Dosage: 4 MG EVERY 3 WEEKS ^FOR ONE YEAR^
  2. TAMOXIFEN CITRATE [Concomitant]
     Indication: BREAST CANCER METASTATIC
  3. ARIMIDEX [Concomitant]
     Indication: BREAST CANCER METASTATIC

REACTIONS (1)
  - ASEPTIC NECROSIS BONE [None]
